FAERS Safety Report 4822922-X (Version None)
Quarter: 2005Q4

REPORT INFORMATION
  Report Type: 
  Country: None (occurrence: None)
  Receive Date: 20051108
  Receipt Date: 20051003
  Transmission Date: 20060501
  Serious: Yes (Other)
  Sender: FDA-Public Use
  Company Number: PHBS2005DE14591

PATIENT
  Age: 40 Year
  Sex: Female

DRUGS (4)
  1. ZOLEDRONATE [Suspect]
     Indication: MULTIPLE MYELOMA
     Dosage: 4 MG, QMO
     Route: 042
  2. CYCLOPHOSPHAMIDE [Concomitant]
     Route: 065
  3. BONE MARROW TRANSPLANT [Concomitant]
     Dosage: AUTOLOGOUS STEM CELL TRANSPLANT
     Route: 065
  4. MELPHALAN [Concomitant]
     Dosage: DOUBLE DOSED
     Route: 065

REACTIONS (6)
  - BONE DISORDER [None]
  - IMPAIRED HEALING [None]
  - OSTEONECROSIS [None]
  - PLASTIC SURGERY [None]
  - SINUSITIS [None]
  - SURGERY [None]
